FAERS Safety Report 9469468 (Version 1)
Quarter: 2013Q3

REPORT INFORMATION
  Report Type: Spontaneous
  Country: US (occurrence: US)
  Receive Date: 20130822
  Receipt Date: 20130822
  Transmission Date: 20140515
  Serious: No
  Sender: FDA-Public Use
  Company Number: US-009507513-1308USA009075

PATIENT
  Age: 37 Year
  Sex: Female

DRUGS (12)
  1. HEXADROL TABLETS [Suspect]
     Indication: HYPERTHYROIDISM
     Route: 048
  2. HYDROCORTISONE [Suspect]
     Indication: PRURITUS GENERALISED
  3. METHIMAZOLE [Concomitant]
     Indication: HYPERTHYROIDISM
     Dosage: 10 MG, BID
  4. ATENOLOL [Concomitant]
     Indication: HYPERTHYROIDISM
     Dosage: 10MG DAILY
  5. PROPYLTHIOURACIL [Concomitant]
     Indication: HYPERTHYROIDISM
     Dosage: 50 MG, Q8H
  6. DIPHENHYDRAMINE HYDROCHLORIDE [Concomitant]
     Indication: PRURITUS GENERALISED
  7. CEFEPIME [Concomitant]
     Indication: NEUTROPENIA
  8. VANCOMYCIN [Concomitant]
     Indication: NEUTROPENIA
  9. FILGRASTIM [Concomitant]
  10. PROPRANOL [Concomitant]
     Indication: HYPERTHYROIDISM
  11. POTASSIUM IODIDE [Concomitant]
     Indication: HYPERTHYROIDISM
  12. CHOLESTYRAMINE RESIN [Concomitant]
     Indication: HYPERTHYROIDISM

REACTIONS (1)
  - Exposure during pregnancy [Recovered/Resolved]
